FAERS Safety Report 25136558 (Version 1)
Quarter: 2025Q1

REPORT INFORMATION
  Report Type: Spontaneous
  Country: US (occurrence: None)
  Receive Date: 20250328
  Receipt Date: 20250328
  Transmission Date: 20250409
  Serious: Yes (Life-Threatening, Hospitalization)
  Sender: FDA-CTU
  Company Number: None

PATIENT
  Age: 75 Year
  Sex: Male
  Weight: 100 kg

DRUGS (1)
  1. EMPAGLIFLOZIN [Suspect]
     Active Substance: EMPAGLIFLOZIN
     Indication: Diabetes mellitus
     Route: 048

REACTIONS (4)
  - Bacteriuria [None]
  - Urinary tract infection [None]
  - Pseudomonal bacteraemia [None]
  - Epididymitis [None]

NARRATIVE: CASE EVENT DATE: 20241023
